FAERS Safety Report 24094806 (Version 1)
Quarter: 2024Q3

REPORT INFORMATION
  Report Type: Report from Study
  Country: US (occurrence: None)
  Receive Date: 20240716
  Receipt Date: 20240716
  Transmission Date: 20241016
  Serious: Yes (Other)
  Sender: ASTRAZENECA
  Company Number: 2024A157002

PATIENT
  Age: 13049 Day
  Sex: Male

DRUGS (13)
  1. TAGRISSO [Suspect]
     Active Substance: OSIMERTINIB
     Indication: Lung neoplasm malignant
     Route: 048
     Dates: start: 20230928
  2. VALPROIC ACID [Concomitant]
     Active Substance: VALPROIC ACID
  3. DEXAMETHASONE [Concomitant]
     Active Substance: DEXAMETHASONE
  4. PAXIL [Concomitant]
     Active Substance: PAROXETINE HYDROCHLORIDE
  5. ATIVAN [Concomitant]
     Active Substance: LORAZEPAM
  6. TEA LEAF [Concomitant]
     Active Substance: TEA LEAF
  7. CHAMOMILE FLOWER POWDER [Concomitant]
  8. TULSI TEA [Concomitant]
  9. OMEGA 3 [Concomitant]
     Active Substance: CAPSAICIN
  10. VITAMIN D3 [Concomitant]
     Active Substance: CHOLECALCIFEROL
  11. HERBALS\TURMERIC [Concomitant]
     Active Substance: HERBALS\TURMERIC
  12. VITAMINS [Concomitant]
     Active Substance: VITAMINS
  13. TURKEY TAIL MUSHROOM [Concomitant]

REACTIONS (1)
  - Seizure [Unknown]

NARRATIVE: CASE EVENT DATE: 20240705
